FAERS Safety Report 20907037 (Version 1)
Quarter: 2022Q2

REPORT INFORMATION
  Report Type: Spontaneous
  Country: BR (occurrence: BR)
  Receive Date: 20220602
  Receipt Date: 20220602
  Transmission Date: 20220721
  Serious: Yes (Hospitalization, Other)
  Sender: FDA-Public Use
  Company Number: BR-ALLERGAN-2217449US

PATIENT
  Sex: Female

DRUGS (3)
  1. BOTOX [Suspect]
     Active Substance: ONABOTULINUMTOXINA
     Indication: Product used for unknown indication
     Dosage: UNK UNK, SINGLE
     Dates: start: 20220226, end: 20220226
  2. COMIRNATY [Suspect]
     Active Substance: TOZINAMERAN
     Indication: Product used for unknown indication
     Dosage: UNK
     Route: 030
     Dates: start: 20210915, end: 20210915
  3. COMIRNATY [Suspect]
     Active Substance: TOZINAMERAN
     Dosage: UNK UNK, SINGLE
     Route: 030
     Dates: start: 20210623, end: 20210623

REACTIONS (29)
  - Dizziness [Recovered/Resolved]
  - Burning sensation [Recovering/Resolving]
  - Muscular weakness [Recovering/Resolving]
  - Hypoaesthesia [Recovering/Resolving]
  - Dizziness [Recovering/Resolving]
  - Syncope [Recovering/Resolving]
  - Hypoaesthesia [Recovering/Resolving]
  - Nausea [Recovering/Resolving]
  - Dyspnoea [Recovering/Resolving]
  - Angioedema [Recovering/Resolving]
  - Ischaemia [Recovering/Resolving]
  - Asphyxia [Recovering/Resolving]
  - Pharyngeal swelling [Not Recovered/Not Resolved]
  - Dysphonia [Unknown]
  - Tension headache [Unknown]
  - Dyspnoea [Unknown]
  - Dyspnoea [Unknown]
  - Muscular weakness [Unknown]
  - Malaise [Unknown]
  - Throat irritation [Unknown]
  - Chest pain [Unknown]
  - Abdominal distension [Recovered/Resolved]
  - Fatigue [Unknown]
  - Somnolence [Unknown]
  - Abdominal distension [Unknown]
  - Dyspnoea [Unknown]
  - Dyspnoea [Unknown]
  - Hanging [Unknown]
  - Weight decreased [Unknown]

NARRATIVE: CASE EVENT DATE: 20220301
